FAERS Safety Report 6344111-2 (Version None)
Quarter: 2009Q3

REPORT INFORMATION
  Report Type: 
  Country: None (occurrence: None)
  Receive Date: 20090904
  Receipt Date: 20090904
  Transmission Date: 20100115
  Serious: Yes (Hospitalization)
  Sender: FDA-Public Use
  Company Number: None

PATIENT
  Age: 62 Year
  Sex: Female
  Weight: 97 kg

DRUGS (1)
  1. HURRICAINE-BENZOCAINE- [Suspect]
     Indication: PREOPERATIVE CARE
     Dosage: ONCE TOP
     Route: 061
     Dates: start: 20090716, end: 20090716

REACTIONS (2)
  - CYANOSIS [None]
  - UNEVALUABLE EVENT [None]
